FAERS Safety Report 8198902-6 (Version None)
Quarter: 2012Q1

REPORT INFORMATION
  Report Type: 
  Country: None (occurrence: None)
  Receive Date: 20120309
  Receipt Date: 20120222
  Transmission Date: 20120608
  Serious: No
  Sender: FDA-Public Use
  Company Number: US-AMGEN-USASP2011062729

PATIENT
  Age: 48 Year
  Sex: Female
  Weight: 50.794 kg

DRUGS (5)
  1. VITAMIN D [Concomitant]
     Dosage: 50000 IU, UNK
     Dates: start: 20110425
  2. CALCIUM [Concomitant]
     Dosage: UNK
     Dates: start: 20110425
  3. B12                                /00056201/ [Concomitant]
     Dosage: 2500 MUG, UNK
     Dates: start: 20110425
  4. PROLIA [Suspect]
     Indication: OSTEOPOROSIS POSTMENOPAUSAL
     Dosage: 60 MG, Q6MO
     Dates: start: 20110608, end: 20110608
  5. TYLENOL (CAPLET) [Concomitant]
     Dosage: UNK
     Dates: start: 20110425

REACTIONS (3)
  - HYPOAESTHESIA [None]
  - PARAESTHESIA [None]
  - MUSCULOSKELETAL PAIN [None]
